FAERS Safety Report 5903142-4 (Version None)
Quarter: 2008Q3

REPORT INFORMATION
  Report Type: 
  Country: None (occurrence: None)
  Receive Date: 20080930
  Receipt Date: 20080923
  Transmission Date: 20090109
  Serious: Yes (Other)
  Sender: FDA-Public Use
  Company Number: MX-ELI_LILLY_AND_COMPANY-MX200809005874

PATIENT
  Sex: Female

DRUGS (4)
  1. HUMULIN N [Suspect]
     Indication: TYPE 2 DIABETES MELLITUS
     Dosage: UNK, UNKNOWN
     Route: 064
  2. HUMALOG [Suspect]
     Dosage: UNK, UNKNOWN
     Route: 064
  3. HUMALOG [Suspect]
     Indication: TYPE 2 DIABETES MELLITUS
     Dosage: 34 IU, EACH MORNING
     Route: 064
     Dates: start: 20080304
  4. HUMALOG [Suspect]
     Dosage: 10 IU, EACH EVENING
     Route: 064
     Dates: start: 20080304

REACTIONS (3)
  - APGAR SCORE LOW [None]
  - DRUG EXPOSURE DURING PREGNANCY [None]
  - REFLUX OESOPHAGITIS [None]
